FAERS Safety Report 21191658 (Version 1)
Quarter: 2022Q3

REPORT INFORMATION
  Report Type: Spontaneous
  Country: US (occurrence: US)
  Receive Date: 20220809
  Receipt Date: 20220809
  Transmission Date: 20221027
  Serious: No
  Sender: FDA-Public Use
  Company Number: US-ELI_LILLY_AND_COMPANY-US202208003966

PATIENT
  Sex: Male

DRUGS (2)
  1. TALTZ [Suspect]
     Active Substance: IXEKIZUMAB
     Indication: Product used for unknown indication
     Dosage: UNK UNK, OTHER (EVERY 4 WEEKS)
     Route: 065
     Dates: start: 2020
  2. TALTZ [Suspect]
     Active Substance: IXEKIZUMAB
     Dosage: UNK UNK, OTHER (EVERY 4 WEEKS)
     Route: 065

REACTIONS (3)
  - Accidental underdose [Unknown]
  - Injection site erythema [Unknown]
  - Injection site mass [Unknown]
